FAERS Safety Report 4775494-2 (Version None)
Quarter: 2005Q3

REPORT INFORMATION
  Report Type: 
  Country: None (occurrence: None)
  Receive Date: 20050921
  Receipt Date: 20050921
  Transmission Date: 20060218
  Serious: Yes (Hospitalization)
  Sender: FDA-Public Use
  Company Number: None

PATIENT
  Age: 51 Year
  Sex: Male
  Weight: 93.441 kg

DRUGS (13)
  1. TIGECYCLINE 50 MG WYETH/CORAM [Suspect]
     Indication: CYSTIC FIBROSIS
     Dosage: 50 MG BID IV
     Route: 042
     Dates: start: 20050909, end: 20050914
  2. ALBUTEROL [Concomitant]
  3. PULMOZYME [Concomitant]
  4. CLARITIN [Concomitant]
  5. NASACORT [Concomitant]
  6. PRILOSEC [Concomitant]
  7. MULTI-VITAMIN [Concomitant]
  8. VITAMIN B50 [Concomitant]
  9. ZYVOX [Concomitant]
  10. ACIDOPHILUS [Concomitant]
  11. AMIKACIN [Concomitant]
  12. NEBULIZER [Concomitant]
  13. ZITHROMAX [Concomitant]

REACTIONS (2)
  - HEADACHE [None]
  - PANCREATITIS ACUTE [None]
